FAERS Safety Report 8233631-1 (Version None)
Quarter: 2012Q1

REPORT INFORMATION
  Report Type: 
  Country: None (occurrence: None)
  Receive Date: 20120326
  Receipt Date: 20120314
  Transmission Date: 20120608
  Serious: Yes (Other)
  Sender: FDA-Public Use
  Company Number: US-ELI_LILLY_AND_COMPANY-US200906004122

PATIENT
  Sex: Female

DRUGS (9)
  1. FORTEO [Suspect]
     Indication: OSTEOPOROSIS
     Dosage: 20 UG, DAILY (1/D)
     Route: 065
     Dates: start: 20090116, end: 20090401
  2. TYLENOL (CAPLET) [Concomitant]
  3. FOSAMAX [Concomitant]
  4. ASPIRIN [Concomitant]
  5. FORTEO [Suspect]
     Dosage: 20 UG, QD
     Route: 065
     Dates: start: 20090501, end: 20090701
  6. SYNTHROID [Concomitant]
  7. VITAMIN D [Concomitant]
  8. HYDROCHLORZIDE [Concomitant]
  9. CALCIUM CARBONATE [Concomitant]

REACTIONS (28)
  - FEELING ABNORMAL [None]
  - ABDOMINAL DISCOMFORT [None]
  - GAIT DISTURBANCE [None]
  - WAIST CIRCUMFERENCE INCREASED [None]
  - HEART RATE IRREGULAR [None]
  - NERVOUSNESS [None]
  - PAIN IN EXTREMITY [None]
  - FOOT FRACTURE [None]
  - OEDEMA PERIPHERAL [None]
  - INJECTION SITE HAEMATOMA [None]
  - HIP FRACTURE [None]
  - INJECTION SITE ERYTHEMA [None]
  - BALANCE DISORDER [None]
  - DIZZINESS [None]
  - DECREASED ACTIVITY [None]
  - MALAISE [None]
  - ANKLE FRACTURE [None]
  - BODY HEIGHT DECREASED [None]
  - IMPAIRED HEALING [None]
  - ANXIETY [None]
  - FATIGUE [None]
  - MIDDLE INSOMNIA [None]
  - THINKING ABNORMAL [None]
  - PATELLA FRACTURE [None]
  - MOBILITY DECREASED [None]
  - ARTHRALGIA [None]
  - DRUG INTOLERANCE [None]
  - FALL [None]
